FAERS Safety Report 7902565-1 (Version None)
Quarter: 2011Q4

REPORT INFORMATION
  Report Type: 
  Country: None (occurrence: None)
  Receive Date: 20111108
  Receipt Date: 20111031
  Transmission Date: 20120403
  Serious: Yes (Other)
  Sender: FDA-Public Use
  Company Number: US-ASTRAZENECA-2010SE31480

PATIENT
  Age: 67 Year
  Sex: Female

DRUGS (3)
  1. RHINOCORT [Suspect]
     Route: 045
  2. CRESTOR [Suspect]
     Dosage: 10 DAILY
     Route: 048
  3. NEXIUM [Suspect]
     Route: 048

REACTIONS (2)
  - ARTHROPATHY [None]
  - MALAISE [None]
